FAERS Safety Report 5869286-0 (Version None)
Quarter: 2008Q3

REPORT INFORMATION
  Report Type: 
  Country: None (occurrence: None)
  Receive Date: 20080828
  Receipt Date: 20080825
  Transmission Date: 20090109
  Serious: Yes (Other)
  Sender: FDA-Public Use
  Company Number: A0744404A

PATIENT
  Age: 38 Year
  Sex: Female

DRUGS (4)
  1. ASPIRIN + CAFFEINE + PARACETAMOL (FORMULATION UNKNOWN) (ACETAMINOPHEN [Suspect]
  2. CAFFEINE [Concomitant]
  3. QUETIAPINE FUMARATE [Concomitant]
  4. LITHIUM SALT [Concomitant]

REACTIONS (2)
  - DEPENDENCE [None]
  - NERVOUSNESS [None]
